FAERS Safety Report 20924440 (Version 1)
Quarter: 2022Q2

REPORT INFORMATION
  Report Type: Spontaneous
  Country: US (occurrence: US)
  Receive Date: 20220607
  Receipt Date: 20220607
  Transmission Date: 20220720
  Serious: Yes (Life-Threatening, Other)
  Sender: FDA-Public Use
  Company Number: US-PFIZER INC-202200773266

PATIENT
  Age: 66 Year
  Sex: Male

DRUGS (7)
  1. HEPARIN SODIUM [Suspect]
     Active Substance: HEPARIN SODIUM
     Indication: Thrombosis
     Dosage: UNK
     Route: 042
  2. DILTIAZEM HYDROCHLORIDE [Concomitant]
     Active Substance: DILTIAZEM HYDROCHLORIDE
     Indication: Arrhythmia
     Dosage: UNK
     Route: 042
  3. METOPROLOL TARTRATE [Concomitant]
     Active Substance: METOPROLOL TARTRATE
     Indication: Arrhythmia
     Dosage: UNK
     Route: 042
  4. ADENOSINE PHOSPHATE [Concomitant]
     Active Substance: ADENOSINE PHOSPHATE
     Indication: Arrhythmia
     Dosage: 6 MG
     Route: 042
  5. ADENOSINE PHOSPHATE [Concomitant]
     Active Substance: ADENOSINE PHOSPHATE
     Dosage: 9 MG
     Route: 042
  6. ADENOSINE PHOSPHATE [Concomitant]
     Active Substance: ADENOSINE PHOSPHATE
     Dosage: 27 MG
     Route: 042
  7. FLECAINIDE [Concomitant]
     Active Substance: FLECAINIDE
     Indication: Arrhythmia
     Dosage: 300 MG
     Route: 048

REACTIONS (4)
  - Supraventricular tachycardia [Unknown]
  - Pulse absent [Unknown]
  - Paraesthesia [Unknown]
  - Pain [Unknown]
